FAERS Safety Report 24259670 (Version 1)
Quarter: 2024Q3

REPORT INFORMATION
  Report Type: Spontaneous
  Country: US (occurrence: US)
  Receive Date: 20240828
  Receipt Date: 20240828
  Transmission Date: 20241017
  Serious: No
  Sender: AMGEN
  Company Number: US-AMGEN-USASP2024166371

PATIENT
  Age: 49 Year
  Sex: Female

DRUGS (2)
  1. IMLYGIC [Suspect]
     Active Substance: TALIMOGENE LAHERPAREPVEC
     Indication: Malignant melanoma
     Dosage: 10^8 (100 MILLION) PFU/ML 1ML VL DS
     Route: 065
     Dates: end: 20240722
  2. IMLYGIC [Suspect]
     Active Substance: TALIMOGENE LAHERPAREPVEC
     Dosage: 10^8 (100 MILLION) PFU/ML 1ML VL DS
     Route: 065
     Dates: start: 20240805

REACTIONS (1)
  - Therapy interrupted [Unknown]

NARRATIVE: CASE EVENT DATE: 20240722
